FAERS Safety Report 8937166 (Version 1)
Quarter: 2012Q4

REPORT INFORMATION
  Report Type: Spontaneous
  Country: DE (occurrence: None)
  Receive Date: 20121121
  Receipt Date: 20121121
  Transmission Date: 20130627
  Serious: Yes (Hospitalization)
  Sender: FDA-Public Use
  Company Number: GER/GER/12/0026680

PATIENT
  Age: 59 Year
  Sex: Female
  Weight: 59 kg

DRUGS (3)
  1. OMEPRAZOLE (OMEPRAZOLE) [Suspect]
     Indication: GASTRIC RESECTION
     Route: 048
     Dates: start: 2005, end: 2006
  2. PANTOPRAZOLE (PANTOPRAZOLE) [Suspect]
     Indication: GASTRIC RESECTION
     Route: 048
     Dates: start: 2005, end: 2006
  3. NEXIUM [Suspect]
     Indication: GASTRIC RESECTION
     Route: 048
     Dates: start: 2006

REACTIONS (7)
  - Abnormal sensation in eye [None]
  - Asthenia [None]
  - Dizziness [None]
  - Visual acuity reduced [None]
  - Visual impairment [None]
  - Ocular discomfort [None]
  - Vision blurred [None]
